FAERS Safety Report 11065087 (Version 3)
Quarter: 2015Q3

REPORT INFORMATION
  Report Type: Spontaneous
  Country: US (occurrence: US)
  Receive Date: 20150424
  Receipt Date: 20150812
  Transmission Date: 20151125
  Serious: No
  Sender: FDA-Public Use
  Company Number: US-JNJFOC-20150320204

PATIENT
  Sex: Female
  Weight: 75.75 kg

DRUGS (12)
  1. TOFRANIL (IMIPRAMINE HYDROCHLORIDE) [Concomitant]
     Route: 065
  2. TOPAMAX [Suspect]
     Active Substance: TOPIRAMATE
     Indication: HEADACHE
     Route: 048
  3. ATIVAN [Concomitant]
     Active Substance: LORAZEPAM
     Indication: MUSCLE SPASMS
     Route: 048
  4. PROZAC [Concomitant]
     Active Substance: FLUOXETINE HYDROCHLORIDE
     Indication: PRODUCT USED FOR UNKNOWN INDICATION
     Route: 065
  5. METOPROLOL TARTRATE. [Concomitant]
     Active Substance: METOPROLOL TARTRATE
     Indication: DIABETES MELLITUS
     Route: 048
  6. TOPAMAX [Suspect]
     Active Substance: TOPIRAMATE
     Indication: HEADACHE
     Route: 048
     Dates: end: 2015
  7. ATIVAN [Concomitant]
     Active Substance: LORAZEPAM
     Indication: MUSCLE SPASMS
     Route: 048
  8. ATIVAN [Concomitant]
     Active Substance: LORAZEPAM
     Indication: MUSCLE SPASMS
     Route: 048
  9. AMITRIPTYLINE [Concomitant]
     Active Substance: AMITRIPTYLINE
     Indication: THYROID DISORDER
     Route: 065
  10. METFORMIN [Concomitant]
     Active Substance: METFORMIN HYDROCHLORIDE
     Indication: DIABETES MELLITUS
     Route: 048
  11. BYETTA [Concomitant]
     Active Substance: EXENATIDE
     Indication: DIABETES MELLITUS
     Route: 050
     Dates: start: 2011
  12. ATIVAN [Concomitant]
     Active Substance: LORAZEPAM
     Indication: MUSCLE SPASMS
     Dosage: 2MG/ -/ 1MG
     Route: 048

REACTIONS (5)
  - Fall [Recovered/Resolved]
  - Blood glucose increased [Recovered/Resolved]
  - Migraine [Not Recovered/Not Resolved]
  - Sedation [Recovered/Resolved]
  - Headache [Not Recovered/Not Resolved]

NARRATIVE: CASE EVENT DATE: 2015
